FAERS Safety Report 22110453 (Version 1)
Quarter: 2023Q1

REPORT INFORMATION
  Report Type: Spontaneous
  Country: KR (occurrence: KR)
  Receive Date: 20230317
  Receipt Date: 20230317
  Transmission Date: 20230418
  Serious: Yes (Other)
  Sender: FDA-Public Use
  Company Number: KR-MYLANLABS-2023M1028787

PATIENT
  Age: 86 Year
  Sex: Female

DRUGS (1)
  1. CELEBREX [Suspect]
     Active Substance: CELECOXIB
     Indication: Femoral neck fracture
     Dosage: 200 MILLIGRAM, BID
     Route: 048
     Dates: start: 20201126, end: 20201213

REACTIONS (2)
  - Renal impairment [Recovered/Resolved]
  - Off label use [Unknown]
